FAERS Safety Report 11705037 (Version 3)
Quarter: 2016Q3

REPORT INFORMATION
  Report Type: Spontaneous
  Country: JP (occurrence: JP)
  Receive Date: 20151106
  Receipt Date: 20160801
  Transmission Date: 20161109
  Serious: Yes (Hospitalization)
  Sender: FDA-Public Use
  Company Number: JP-EISAI MEDICAL RESEARCH-EC-2015-011780

PATIENT
  Age: 73 Year
  Sex: Male
  Weight: 75 kg

DRUGS (18)
  1. RABEPRAZOLE [Suspect]
     Active Substance: RABEPRAZOLE
     Dosage: RABEPRAZOLE SODIUM
     Route: 048
     Dates: start: 20120511, end: 20120703
  2. PRECIPITATED CALCIUM CARBONATE [Concomitant]
     Active Substance: CALCIUM CARBONATE
     Indication: HYPERPHOSPHATAEMIA
     Route: 048
     Dates: start: 20120210
  3. WARFARIN [Concomitant]
     Active Substance: WARFARIN
     Indication: LACUNAR INFARCTION
  4. ALLOPURINOL. [Concomitant]
     Active Substance: ALLOPURINOL
     Indication: HYPERURICAEMIA
     Route: 048
     Dates: end: 20120703
  5. RABEPRAZOLE [Suspect]
     Active Substance: RABEPRAZOLE
     Indication: PROPHYLAXIS AGAINST GASTROINTESTINAL ULCER
     Dosage: PARIET
     Route: 048
     Dates: start: 20120106, end: 20120510
  6. BISOPROLOL [Concomitant]
     Active Substance: BISOPROLOL
     Indication: HYPERTENSION
     Route: 065
  7. ALLOPURINOL. [Concomitant]
     Active Substance: ALLOPURINOL
     Route: 048
     Dates: start: 20120704, end: 20120711
  8. NESP [Concomitant]
     Active Substance: DARBEPOETIN ALFA
     Indication: NEPHROGENIC ANAEMIA
     Route: 058
     Dates: start: 20110625
  9. AMLODIPINE [Concomitant]
     Active Substance: AMLODIPINE BESYLATE
     Indication: HYPERTENSION
     Route: 048
     Dates: start: 20110726
  10. WARFARIN [Concomitant]
     Active Substance: WARFARIN
     Indication: MYOCARDIAL ISCHAEMIA
     Route: 065
  11. CLOPIDOGREL [Concomitant]
     Active Substance: CLOPIDOGREL BISULFATE
     Indication: MYOCARDIAL ISCHAEMIA
     Route: 065
  12. FUROSEMIDE. [Concomitant]
     Active Substance: FUROSEMIDE
     Indication: HYPERTENSION
     Route: 048
     Dates: start: 20110624
  13. FULSTAN [Concomitant]
     Indication: HYPERPARATHYROIDISM SECONDARY
     Route: 048
     Dates: start: 20120309
  14. PLETAAL [Concomitant]
     Active Substance: CILOSTAZOL
     Indication: LACUNAR INFARCTION
     Route: 048
     Dates: start: 20120522, end: 20120705
  15. ARTIST [Concomitant]
     Active Substance: CARVEDILOL
     Indication: HYPERTENSION
     Route: 065
  16. CLOPIDOGREL [Concomitant]
     Active Substance: CLOPIDOGREL BISULFATE
     Indication: LACUNAR INFARCTION
  17. SODIUM FERROUS CITRATE [Concomitant]
     Active Substance: SODIUM FERROUS CITRATE
     Indication: NEPHROGENIC ANAEMIA
     Route: 048
     Dates: start: 20110630, end: 20120716
  18. VITAMEDIN [Concomitant]
     Active Substance: CYANOCOBALAMIN\PYRIDOXINE HYDROCHLORIDE\THIAMINE
     Indication: PROPHYLAXIS
     Route: 048
     Dates: end: 20120705

REACTIONS (1)
  - Colitis microscopic [Recovering/Resolving]

NARRATIVE: CASE EVENT DATE: 20120612
